FAERS Safety Report 10338774 (Version 2)
Quarter: 2014Q3

REPORT INFORMATION
  Report Type: Spontaneous
  Country: US (occurrence: US)
  Receive Date: 20140724
  Receipt Date: 20140918
  Transmission Date: 20150326
  Serious: Yes (Life-Threatening, Hospitalization)
  Sender: FDA-Public Use
  Company Number: US-BAYER-2014-109503

PATIENT
  Age: 27 Year
  Sex: Female

DRUGS (2)
  1. MIRENA [Suspect]
     Active Substance: LEVONORGESTREL
     Indication: CONTRACEPTION
     Dosage: 20 MCG/24HR, CONT
     Route: 015
     Dates: start: 20130311, end: 20131204
  2. VALTREX [Concomitant]
     Active Substance: VALACYCLOVIR HYDROCHLORIDE
     Indication: ANTIVIRAL PROPHYLAXIS
     Dosage: UNK
     Route: 048
     Dates: start: 200601

REACTIONS (15)
  - Medical device discomfort [None]
  - Emotional distress [None]
  - General physical health deterioration [None]
  - Scar [None]
  - Infection [None]
  - Injury [None]
  - Anhedonia [None]
  - Abdominal pain [None]
  - Depression [None]
  - Partner stress [None]
  - Device failure [None]
  - Uterine perforation [None]
  - Procedural pain [Recovering/Resolving]
  - Loss of libido [None]
  - Anxiety [None]

NARRATIVE: CASE EVENT DATE: 201312
